FAERS Safety Report 7048251-4 (Version None)
Quarter: 2010Q4

REPORT INFORMATION
  Report Type: 
  Country: None (occurrence: None)
  Receive Date: 20101015
  Receipt Date: 20101007
  Transmission Date: 20110411
  Serious: Yes (Death)
  Sender: FDA-Public Use
  Company Number: US-BAXTER-2010BH023564

PATIENT
  Age: 13 Month
  Sex: Female

DRUGS (2)
  1. EXTRANEAL [Suspect]
     Indication: PERITONEAL DIALYSIS
     Route: 033
     Dates: end: 20100829
  2. EXTRANEAL [Suspect]
     Indication: OFF LABEL USE
     Route: 033
     Dates: end: 20100829

REACTIONS (1)
  - RESPIRATORY FAILURE [None]
